FAERS Safety Report 16704698 (Version 1)
Quarter: 2019Q3

REPORT INFORMATION
  Report Type: Spontaneous
  Country: BG (occurrence: BG)
  Receive Date: 20190814
  Receipt Date: 20190814
  Transmission Date: 20191004
  Serious: Yes (Other)
  Sender: FDA-Public Use
  Company Number: BG-TAKEDA-2019TUS047867

PATIENT
  Age: 76 Year
  Sex: Female

DRUGS (6)
  1. NOLIPREL BI FORTE [Concomitant]
     Dosage: UNK
     Route: 065
  2. BETALOK [Concomitant]
     Active Substance: METOPROLOL SUCCINATE
     Dosage: UNK
     Route: 065
  3. PHYSIOTENS [Concomitant]
     Active Substance: MOXONIDINE
     Dosage: UNK
     Route: 065
  4. PAMATON [Concomitant]
     Dosage: UNK
     Route: 065
  5. ADENURIC [Suspect]
     Active Substance: FEBUXOSTAT
     Indication: HYPERURICAEMIA
     Dosage: 120 MILLIGRAM, QD
     Route: 048
     Dates: start: 201803, end: 2018
  6. CAVINTON [Concomitant]
     Active Substance: VINPOCETINE
     Dosage: UNK
     Route: 065

REACTIONS (1)
  - Stevens-Johnson syndrome [Recovered/Resolved]

NARRATIVE: CASE EVENT DATE: 2018
